FAERS Safety Report 12855968 (Version 1)
Quarter: 2016Q4

REPORT INFORMATION
  Report Type: Spontaneous
  Country: US (occurrence: US)
  Receive Date: 20161018
  Receipt Date: 20161018
  Transmission Date: 20170207
  Serious: Yes (Hospitalization)
  Sender: FDA-Public Use
  Company Number: US-BEH-2016074110

PATIENT
  Age: 72 Year
  Sex: Female
  Weight: 81.63 kg

DRUGS (35)
  1. EPIPEN [Concomitant]
     Active Substance: EPINEPHRINE
  2. PHILLIPS COLON HEALTH [Concomitant]
  3. PROBIOTIC                          /06395501/ [Concomitant]
     Active Substance: BIFIDOBACTERIUM ANIMALIS SUBSP. LACTIS
  4. LASIX [Concomitant]
     Active Substance: FUROSEMIDE
  5. LANTUS [Concomitant]
     Active Substance: INSULIN GLARGINE
  6. ZYLOPRIM [Concomitant]
     Active Substance: ALLOPURINOL
  7. PREDNISONE. [Concomitant]
     Active Substance: PREDNISONE
  8. COMBIVENT [Concomitant]
     Active Substance: ALBUTEROL SULFATE\IPRATROPIUM BROMIDE
  9. NOVOLOG [Concomitant]
     Active Substance: INSULIN ASPART
  10. ALLOPURINOL. [Concomitant]
     Active Substance: ALLOPURINOL
  11. ACETAMINOPHEN. [Concomitant]
     Active Substance: ACETAMINOPHEN
  12. LIDOCAINE/PRILOCAINE [Concomitant]
     Active Substance: LIDOCAINE\PRILOCAINE
  13. ASPIRIN. [Concomitant]
     Active Substance: ASPIRIN
  14. HYDRALAZINE [Concomitant]
     Active Substance: HYDRALAZINE HYDROCHLORIDE
  15. LIDODERM [Concomitant]
     Active Substance: LIDOCAINE
  16. VITAMIN D                          /00107901/ [Concomitant]
     Active Substance: ERGOCALCIFEROL
  17. VYTORIN [Concomitant]
     Active Substance: EZETIMIBE\SIMVASTATIN
  18. HIZENTRA [Suspect]
     Active Substance: HUMAN IMMUNOGLOBULIN G
     Indication: IMMUNODEFICIENCY COMMON VARIABLE
     Dosage: 12 G, QW
     Route: 058
  19. DIPHENHYDRAMINE. [Concomitant]
     Active Substance: DIPHENHYDRAMINE
  20. DILTIAZEM. [Concomitant]
     Active Substance: DILTIAZEM
  21. FISH OIL [Concomitant]
     Active Substance: FISH OIL
  22. SYMBICORT [Concomitant]
     Active Substance: BUDESONIDE\FORMOTEROL FUMARATE DIHYDRATE
  23. ALLEGRA [Concomitant]
     Active Substance: FEXOFENADINE HYDROCHLORIDE
  24. MULTIVITAMINS WITH IRON            /01824901/ [Concomitant]
  25. DENAVIR [Concomitant]
     Active Substance: PENCICLOVIR
  26. PLAVIX [Concomitant]
     Active Substance: CLOPIDOGREL BISULFATE
  27. NITROGLYCERIN. [Concomitant]
     Active Substance: NITROGLYCERIN
  28. PROAIR HFA [Concomitant]
     Active Substance: ALBUTEROL SULFATE
  29. AVELOX [Concomitant]
     Active Substance: MOXIFLOXACIN HYDROCHLORIDE
  30. DUONEB [Concomitant]
     Active Substance: ALBUTEROL SULFATE\IPRATROPIUM BROMIDE
  31. PROTONIX [Concomitant]
     Active Substance: PANTOPRAZOLE SODIUM
  32. ZITHROMAX [Concomitant]
     Active Substance: AZITHROMYCIN DIHYDRATE
  33. DIOVAN [Concomitant]
     Active Substance: VALSARTAN
  34. POTASSIUM CL [Concomitant]
     Active Substance: POTASSIUM CHLORIDE
  35. ZYFLO [Concomitant]
     Active Substance: ZILEUTON

REACTIONS (2)
  - Cardiac failure congestive [Unknown]
  - Respiratory tract infection [Unknown]

NARRATIVE: CASE EVENT DATE: 20160916
